FAERS Safety Report 8177854-9 (Version None)
Quarter: 2012Q1

REPORT INFORMATION
  Report Type: 
  Country: None (occurrence: None)
  Receive Date: 20120301
  Receipt Date: 20110906
  Transmission Date: 20120608
  Serious: Yes (Hospitalization, Other)
  Sender: FDA-Public Use
  Company Number: AU-ROCHE-752728

PATIENT
  Sex: Male
  Weight: 109.8 kg

DRUGS (17)
  1. WARFARIN SODIUM [Suspect]
     Route: 065
  2. ASPIRIN [Concomitant]
  3. GLUCOSAMINE [Concomitant]
  4. OXYCONTIN [Concomitant]
  5. PHENERGAN [Concomitant]
  6. WARFARIN SODIUM [Suspect]
     Indication: PRODUCT USED FOR UNKNOWN INDICATION
     Route: 065
  7. WARFARIN SODIUM [Suspect]
     Dosage: WITH HELD
     Route: 065
  8. PERINDOPRIL ERBUMINE [Concomitant]
  9. METOPROLOL SUCCINATE [Concomitant]
  10. METOPROLOL SUCCINATE [Concomitant]
  11. FISH OIL [Concomitant]
  12. LERCANIDIPINE [Concomitant]
  13. OSTEO-EASE [Concomitant]
     Dates: start: 20101020
  14. MORPHINE [Concomitant]
     Dosage: REPORTED AS: MIST MORPHINE, TDD: 0.2-0.5 ML
  15. PYRIDOXINE HCL [Concomitant]
  16. VEMURAFENIB [Suspect]
     Indication: METASTATIC MALIGNANT MELANOMA
     Dosage: TEMPORARILY INTERRUPTED.  DOSE ALREADY ADJUSTED AS PER PROTOCOL.
     Route: 048
     Dates: start: 20101207, end: 20110110
  17. VEMURAFENIB [Suspect]
     Route: 048

REACTIONS (4)
  - BLOOD BILIRUBIN INCREASED [None]
  - BLOOD ALKALINE PHOSPHATASE INCREASED [None]
  - GAMMA-GLUTAMYLTRANSFERASE INCREASED [None]
  - EPISTAXIS [None]
